FAERS Safety Report 7875157-0 (Version None)
Quarter: 2011Q4

REPORT INFORMATION
  Report Type: 
  Country: None (occurrence: None)
  Receive Date: 20111031
  Receipt Date: 20111019
  Transmission Date: 20120403
  Serious: No
  Sender: FDA-Public Use
  Company Number: US-BIOGENIDEC-2011BI039973

PATIENT
  Age: 73 Year
  Sex: Female

DRUGS (2)
  1. AVONEX [Suspect]
     Indication: MULTIPLE SCLEROSIS
     Route: 030
     Dates: start: 20071201
  2. ORAL ANTI-ANXIETY MEDICATION [Concomitant]
     Indication: STRESS

REACTIONS (3)
  - HERPES ZOSTER [None]
  - STRESS [None]
  - UPPER RESPIRATORY TRACT INFECTION [None]
